FAERS Safety Report 4462407-6 (Version None)
Quarter: 2004Q3

REPORT INFORMATION
  Report Type: 
  Country: None (occurrence: None)
  Receive Date: 20040924
  Receipt Date: 20040909
  Transmission Date: 20050211
  Serious: Yes (Hospitalization)
  Sender: FDA-Public Use
  Company Number: 2004-BP-07933NB

PATIENT
  Age: 59 Year
  Sex: Male

DRUGS (5)
  1. BI-SIFROL TABLETS (PRAMIPEXOLE DIHYDROCHLORIDE)(TA) [Suspect]
     Indication: PARKINSON'S DISEASE
     Dosage: 3 MG (0.5 MG)
     Route: 048
     Dates: start: 20040614
  2. CABERGOLINE [Concomitant]
  3. SINEMET [Concomitant]
  4. FP (SELEGILNE HYDROCHLORIDE) [Concomitant]
  5. ARTANE [Concomitant]

REACTIONS (3)
  - DEHYDRATION [None]
  - PNEUMONIA [None]
  - PYREXIA [None]
